FAERS Safety Report 7246967-8 (Version None)
Quarter: 2011Q1

REPORT INFORMATION
  Report Type: 
  Country: None (occurrence: None)
  Receive Date: 20110127
  Receipt Date: 20110117
  Transmission Date: 20110831
  Serious: Yes (Other)
  Sender: FDA-Public Use
  Company Number: US-ASTRAZENECA-2011SE03381

PATIENT
  Age: 71 Year
  Sex: Male

DRUGS (1)
  1. PRILOSEC OTC [Suspect]
     Indication: GASTROOESOPHAGEAL REFLUX DISEASE
     Route: 048
     Dates: start: 20090101

REACTIONS (4)
  - FACIAL PARESIS [None]
  - CRANIAL NERVE DISORDER [None]
  - INCORRECT DRUG ADMINISTRATION DURATION [None]
  - VERTIGO [None]
